FAERS Safety Report 5600968-1 (Version None)
Quarter: 2008Q1

REPORT INFORMATION
  Report Type: 
  Country: None (occurrence: None)
  Receive Date: 20080124
  Receipt Date: 20080116
  Transmission Date: 20080703
  Serious: Yes (Other)
  Sender: FDA-Public Use
  Company Number: PHNU2008DE00583

PATIENT
  Sex: Male

DRUGS (3)
  1. TOBRAMYCIN [Suspect]
     Route: 042
  2. VORICONAZOLE [Concomitant]
  3. TOBI [Suspect]
     Indication: CYSTIC FIBROSIS
     Dosage: 300 MG, BID
     Dates: start: 20050101

REACTIONS (1)
  - DEAFNESS [None]
